FAERS Safety Report 4479231-0 (Version None)
Quarter: 2004Q4

REPORT INFORMATION
  Report Type: 
  Country: None (occurrence: None)
  Receive Date: 20041015
  Receipt Date: 20041002
  Transmission Date: 20050328
  Serious: Yes (Hospitalization)
  Sender: FDA-Public Use
  Company Number: FEI2004-0885 (0)

PATIENT
  Age: 24 Year
  Sex: Female
  Weight: 83.0083 kg

DRUGS (1)
  1. INTRAUTERINE COPPER CONTRACEPTIVE [Suspect]
     Indication: CONTRACEPTION
     Dosage: INTRA-UTERINE
     Route: 015

REACTIONS (8)
  - ABORTION INFECTED [None]
  - ABORTION SPONTANEOUS [None]
  - CHORIOAMNIONITIS [None]
  - COMPLICATION OF DEVICE REMOVAL [None]
  - DISSEMINATED INTRAVASCULAR COAGULATION [None]
  - INFECTION [None]
  - INTRA-UTERINE DEATH [None]
  - PREGNANCY WITH CONTRACEPTIVE DEVICE [None]
